FAERS Safety Report 15583303 (Version 1)
Quarter: 2018Q4

REPORT INFORMATION
  Report Type: Not Available
  Country: US (occurrence: US)
  Receive Date: 20181105
  Receipt Date: 20181105
  Transmission Date: 20190205
  Serious: No
  Sender: FDA-Public Use
  Company Number: US-NEUROCRINE BIOSCIENCES INC.-2018NBI03110

PATIENT
  Sex: Female

DRUGS (20)
  1. BREO ELLIPTA [Concomitant]
     Active Substance: FLUTICASONE FUROATE\VILANTEROL TRIFENATATE
  2. FUROSEMIDE. [Concomitant]
     Active Substance: FUROSEMIDE
     Route: 048
  3. VENLAFAXINE [Concomitant]
     Active Substance: VENLAFAXINE HYDROCHLORIDE
  4. POTASSIUM CHLORIDE. [Concomitant]
     Active Substance: POTASSIUM CHLORIDE
  5. ALBUTEROL. [Concomitant]
     Active Substance: ALBUTEROL
  6. IRBESARTAN. [Concomitant]
     Active Substance: IRBESARTAN
     Route: 048
  7. LORAZEPAM. [Concomitant]
     Active Substance: LORAZEPAM
  8. AMITIZA [Concomitant]
     Active Substance: LUBIPROSTONE
     Route: 048
  9. DONEPEZIL. [Concomitant]
     Active Substance: DONEPEZIL
     Route: 048
  10. INGREZZA [Suspect]
     Active Substance: VALBENAZINE
     Indication: PRODUCT USED FOR UNKNOWN INDICATION
     Route: 048
     Dates: start: 20180917
  11. LEVOTHYROXINE. [Concomitant]
     Active Substance: LEVOTHYROXINE
  12. METOPROLOL TARTRATE. [Concomitant]
     Active Substance: METOPROLOL TARTRATE
  13. ALLOPURINOL. [Concomitant]
     Active Substance: ALLOPURINOL
  14. DICLOFENAC POTASSIUM. [Concomitant]
     Active Substance: DICLOFENAC POTASSIUM
  15. GABAPENTIN. [Concomitant]
     Active Substance: GABAPENTIN
     Route: 048
  16. METOLAZONE. [Concomitant]
     Active Substance: METOLAZONE
  17. OMEPRAZOLE. [Concomitant]
     Active Substance: OMEPRAZOLE
  18. LEVOCETIRIZINE [Concomitant]
     Active Substance: LEVOCETIRIZINE
     Route: 048
  19. OXYCODONE/ACETAMINOPHEN [Concomitant]
     Active Substance: ACETAMINOPHEN\OXYCODONE HYDROCHLORIDE
  20. XARELTO [Concomitant]
     Active Substance: RIVAROXABAN

REACTIONS (3)
  - Drug effect decreased [None]
  - Gingival erosion [Unknown]
  - Dry mouth [Unknown]

NARRATIVE: CASE EVENT DATE: 2018
